FAERS Safety Report 22304890 (Version 1)
Quarter: 2023Q2

REPORT INFORMATION
  Report Type: Spontaneous
  Country: AT (occurrence: None)
  Receive Date: 20230510
  Receipt Date: 20230510
  Transmission Date: 20230722
  Serious: Yes (Hospitalization)
  Sender: FDA-Public Use
  Company Number: 2023A105604

PATIENT
  Sex: Female
  Weight: 52 kg

DRUGS (1)
  1. TAGRISSO [Suspect]
     Active Substance: OSIMERTINIB
     Indication: Lung carcinoma cell type unspecified stage IV
     Route: 048
     Dates: start: 20191001, end: 20230430

REACTIONS (11)
  - Thrombosis [Unknown]
  - Tendonitis [Unknown]
  - Pain in extremity [Unknown]
  - Skin disorder [Unknown]
  - Impaired healing [Unknown]
  - Arthralgia [Unknown]
  - Contusion [Unknown]
  - Mobility decreased [Unknown]
  - Drug resistance [Unknown]
  - Pelvic pain [Unknown]
  - Skin fissures [Unknown]
